FAERS Safety Report 16119575 (Version 1)
Quarter: 2019Q1

REPORT INFORMATION
  Report Type: Report from Study
  Country: CH (occurrence: CH)
  Receive Date: 20190326
  Receipt Date: 20190326
  Transmission Date: 20190418
  Serious: Yes (Other)
  Sender: FDA-Public Use
  Company Number: CH-BAYER-2019-024035

PATIENT
  Age: 44 Year
  Sex: Female

DRUGS (4)
  1. IBUPROFEN. [Concomitant]
     Active Substance: IBUPROFEN
     Indication: PROCEDURAL PAIN
     Dosage: 600 MG, TID
     Dates: start: 20190108, end: 20190109
  2. SYMBICORT [Concomitant]
     Active Substance: BUDESONIDE\FORMOTEROL FUMARATE DIHYDRATE
     Indication: ASTHMA
     Dosage: PRN, ABOUT 2-3 TIMES PER MONTH
     Route: 055
  3. MIRENA [Suspect]
     Active Substance: LEVONORGESTREL
     Indication: MENORRHAGIA
     Dosage: 20 MCG/24HR, CONT
     Route: 015
     Dates: start: 20190108, end: 20190130
  4. DAFALGAN [Concomitant]
     Active Substance: ACETAMINOPHEN
     Indication: PROCEDURAL PAIN
     Dosage: 1 G, TID
     Route: 048
     Dates: start: 20190108, end: 20190109

REACTIONS (9)
  - Irritability [Recovering/Resolving]
  - Hyperbilirubinaemia [Recovering/Resolving]
  - Alanine aminotransferase increased [Recovering/Resolving]
  - Jaundice [Recovering/Resolving]
  - Ovarian cyst [None]
  - Sleep disorder [None]
  - Weight increased [None]
  - Aspartate aminotransferase increased [Recovering/Resolving]
  - Fatigue [Recovering/Resolving]

NARRATIVE: CASE EVENT DATE: 20190121
